FAERS Safety Report 5938088-9 (Version None)
Quarter: 2008Q4

REPORT INFORMATION
  Report Type: 
  Country: None (occurrence: None)
  Receive Date: 20081031
  Receipt Date: 20081024
  Transmission Date: 20090506
  Serious: Yes (Hospitalization, Disabling)
  Sender: FDA-Public Use
  Company Number: PHHY2008JP26104

PATIENT

DRUGS (4)
  1. SIMULECT [Suspect]
     Indication: RENAL TRANSPLANT
     Dosage: 20 MG DAILY
     Route: 042
     Dates: start: 20060323, end: 20060323
  2. SIMULECT [Suspect]
     Dosage: 20 MG DAILY
     Route: 042
     Dates: start: 20060327, end: 20060327
  3. PROGRAF [Concomitant]
     Indication: RENAL TRANSPLANT
     Dosage: 4 MG,
     Route: 048
     Dates: start: 20060323, end: 20060702
  4. CELLCEPT [Concomitant]
     Indication: RENAL TRANSPLANT
     Dosage: 2 G,
     Route: 048
     Dates: start: 20060325, end: 20060420

REACTIONS (2)
  - COMPLICATIONS OF TRANSPLANTED KIDNEY [None]
  - RENAL GRAFT LOSS [None]
